FAERS Safety Report 24291541 (Version 1)
Quarter: 2024Q3

REPORT INFORMATION
  Report Type: Spontaneous
  Country: US (occurrence: None)
  Receive Date: 20240906
  Receipt Date: 20240906
  Transmission Date: 20241017
  Serious: No
  Sender: DOMPE FARMACEUTICI
  Company Number: US-FARMAPROD-202308-202309-2751

PATIENT
  Age: 70 Year
  Sex: Male

DRUGS (11)
  1. OXERVATE [Suspect]
     Active Substance: CENEGERMIN-BKBJ
     Indication: Neurotrophic keratopathy
     Route: 047
     Dates: start: 20220822, end: 20221018
  2. OXERVATE [Suspect]
     Active Substance: CENEGERMIN-BKBJ
     Route: 047
     Dates: start: 20230907, end: 20231011
  3. OXERVATE [Suspect]
     Active Substance: CENEGERMIN-BKBJ
  4. HYDROCORTISONE ACETATE\LIDOCAINE HYDROCHLORIDE [Concomitant]
     Active Substance: HYDROCORTISONE ACETATE\LIDOCAINE HYDROCHLORIDE
  5. SYSTANE (HYPROMELLOSE 2910 (4000 MPA.S)) [Concomitant]
     Active Substance: HYPROMELLOSE 2910 (4000 MPA.S)
     Dosage: 0.3 %-0.4%
  6. MURO-128 [Concomitant]
  7. MURO-128 [Concomitant]
  8. TOBRAMYCIN [Concomitant]
     Active Substance: TOBRAMYCIN\TOBRAMYCIN SULFATE
  9. ASPIRIN [Concomitant]
     Active Substance: ASPIRIN
  10. OMEPRAZOLE [Concomitant]
     Active Substance: OMEPRAZOLE
  11. METOPROLOL SUCCINATE [Concomitant]
     Active Substance: METOPROLOL SUCCINATE

REACTIONS (7)
  - Eye pain [Not Recovered/Not Resolved]
  - Ocular hyperaemia [Not Recovered/Not Resolved]
  - Ocular discomfort [Unknown]
  - Lacrimation increased [Unknown]
  - Photophobia [Unknown]
  - Eye ulcer [Not Recovered/Not Resolved]
  - Eye infection [Unknown]

NARRATIVE: CASE EVENT DATE: 20230901
